FAERS Safety Report 6174281-0 (Version None)
Quarter: 2009Q2

REPORT INFORMATION
  Report Type: 
  Country: None (occurrence: None)
  Receive Date: 20090430
  Receipt Date: 20080429
  Transmission Date: 20091009
  Serious: No
  Sender: FDA-Public Use
  Company Number: US-ASTRAZENECA-2008UW08726

PATIENT
  Age: 71 Year
  Sex: Female

DRUGS (2)
  1. NEXIUM [Suspect]
     Indication: ABDOMINAL DISCOMFORT
     Route: 048
     Dates: start: 20080409
  2. BONIVA [Concomitant]

REACTIONS (5)
  - ABDOMINAL PAIN UPPER [None]
  - CHILLS [None]
  - DIARRHOEA [None]
  - DIZZINESS [None]
  - MALAISE [None]
